FAERS Safety Report 8807866 (Version 1)
Quarter: 2012Q4

REPORT INFORMATION
  Report Type: 
  Country: CN (occurrence: CN)
  Receive Date: 20120925
  Receipt Date: 20120925
  Transmission Date: 20130627
  Serious: Yes (Other)
  Sender: FDA-Public Use
  Company Number: CN-GLAXOSMITHKLINE-B0832777A

PATIENT
  Sex: Male
  Weight: 88 kg

DRUGS (1)
  1. LAMIVUDINE-HBV [Suspect]
     Indication: HEPATITIS B
     Dosage: 100MG per day
     Route: 048

REACTIONS (2)
  - Anaphylactoid reaction [Recovering/Resolving]
  - Myalgia [Recovering/Resolving]
